FAERS Safety Report 8597621 (Version 2)
Quarter: 2013Q2

REPORT INFORMATION
  Report Type: Spontaneous
  Country: US (occurrence: US)
  Receive Date: 20120605
  Receipt Date: 20130619
  Transmission Date: 20140414
  Serious: Yes (Hospitalization)
  Sender: FDA-Public Use
  Company Number: US-AMGEN-USASP2012029947

PATIENT
  Age: 63 Year
  Sex: Male

DRUGS (3)
  1. ENBREL [Suspect]
     Indication: PSORIASIS
     Dosage: 50 MG, QWK
     Route: 065
     Dates: start: 20110228
  2. OXYCODONE [Concomitant]
     Dosage: 40MG 4-5 TIMES A DAY
  3. LYRICA [Concomitant]
     Dosage: UNK

REACTIONS (9)
  - Pain [Recovered/Resolved]
  - Chest pain [Recovered/Resolved]
  - Dementia Alzheimer^s type [Not Recovered/Not Resolved]
  - Arthralgia [Not Recovered/Not Resolved]
  - Back pain [Not Recovered/Not Resolved]
  - Scab [Not Recovered/Not Resolved]
  - Mobility decreased [Not Recovered/Not Resolved]
  - Cardiac disorder [Not Recovered/Not Resolved]
  - Psoriasis [Not Recovered/Not Resolved]
